FAERS Safety Report 8489972-6 (Version None)
Quarter: 2012Q3

REPORT INFORMATION
  Report Type: 
  Country: None (occurrence: None)
  Receive Date: 20120705
  Receipt Date: 20120627
  Transmission Date: 20120928
  Serious: Yes (Death, Other)
  Sender: FDA-Public Use
  Company Number: JP-SANOFI-AVENTIS-2012SA041265

PATIENT
  Age: 77 Year
  Sex: Male
  Weight: 66.95 kg

DRUGS (2)
  1. TAXOTERE [Suspect]
     Indication: PROSTATE CANCER RECURRENT
     Dosage: DOSE: 70MG/M2/DAY
     Route: 041
     Dates: start: 20120522, end: 20120522
  2. PREDNISOLONE SODIUM SUCCINATE INJ [Suspect]
     Indication: PROSTATE CANCER RECURRENT
     Route: 065
     Dates: start: 20120522, end: 20120530

REACTIONS (10)
  - GASTROINTESTINAL HAEMORRHAGE [None]
  - BLOOD PRESSURE DECREASED [None]
  - BLOOD BILIRUBIN DECREASED [None]
  - MELAENA [None]
  - PYREXIA [None]
  - NEUTROPENIA [None]
  - HEPATIC ENCEPHALOPATHY [None]
  - WHITE BLOOD CELL COUNT DECREASED [None]
  - PLATELET COUNT DECREASED [None]
  - DEPRESSED LEVEL OF CONSCIOUSNESS [None]
